FAERS Safety Report 9869567 (Version 3)
Quarter: 2014Q2

REPORT INFORMATION
  Report Type: Spontaneous
  Country: IT (occurrence: None)
  Receive Date: 20140131
  Receipt Date: 20140428
  Transmission Date: 20141212
  Serious: Yes (Hospitalization)
  Sender: FDA-Public Use
  Company Number: AUR-APL-2014-00596

PATIENT
  Age: 80 Year
  Sex: Female

DRUGS (7)
  1. ATENOLOL [Suspect]
     Indication: HYPERTENSION
     Route: 048
     Dates: start: 20121015, end: 20131015
  2. CARDIRENE (ACETYLSALICYLATE LYSINE) [Concomitant]
  3. FOSIPRES (FOSINOPRIL SODIUM) [Concomitant]
  4. PANTOPAN (PANTOPRAZOLE SODIUM SESQUIHYDRATE) [Concomitant]
  5. ALIFLUS (SERETIDE) [Concomitant]
  6. TACHIPIRINA (PARACETAMOL) [Concomitant]
  7. LORAZEPAM (LORAZEPAM) [Concomitant]

REACTIONS (4)
  - Asthenia [None]
  - Atrioventricular block second degree [None]
  - Dyspnoea [None]
  - Diarrhoea [None]
